FAERS Safety Report 8774292 (Version 3)
Quarter: 2013Q2

REPORT INFORMATION
  Report Type: Spontaneous
  Country: JP (occurrence: JP)
  Receive Date: 20120907
  Receipt Date: 20130528
  Transmission Date: 20140414
  Serious: Yes (Death, Hospitalization, Disabling, Other)
  Sender: FDA-Public Use
  Company Number: JP-TEVA-2011004011

PATIENT
  Age: 62 Year
  Sex: Male
  Weight: 47 kg

DRUGS (12)
  1. BENDAMUSTINE HCL [Suspect]
     Indication: MANTLE CELL LYMPHOMA
     Dosage: 135 MG/M2 DAILY;
     Route: 042
     Dates: start: 20110412, end: 20110413
  2. BENDAMUSTINE HCL [Suspect]
     Dosage: 135 MG/M2 DAILY;
     Route: 042
     Dates: start: 20120524, end: 20120525
  3. BENDAMUSTINE HCL [Suspect]
     Dosage: 90 MG/M2 DAILY;
     Route: 042
     Dates: start: 20110706, end: 20110707
  4. RITUXIMAB [Concomitant]
     Dates: start: 201103
  5. RITUXIMAB [Concomitant]
     Dates: start: 20110405
  6. RITUXIMAB [Concomitant]
     Dates: start: 20110523
  7. RITUXIMAB [Concomitant]
     Dates: start: 20110705
  8. LEVOFLOXACIN [Concomitant]
     Indication: INFECTION PROPHYLAXIS
     Dosage: 500 MILLIGRAM DAILY;
     Dates: start: 20110602, end: 201110
  9. VALACICLOVIR HYDROCHLORIDE [Concomitant]
     Indication: INFECTION PROPHYLAXIS
     Dosage: 500 MILLIGRAM DAILY;
     Dates: start: 20100813, end: 201110
  10. FLUCONAZOLE [Concomitant]
     Indication: INFECTION PROPHYLAXIS
     Dosage: 100 MILLIGRAM DAILY;
     Dates: start: 20100812, end: 201110
  11. SULFAMETHOXAZOLE W/TRIMETHOPRIM [Concomitant]
     Indication: INFECTION PROPHYLAXIS
     Dosage: 1 TABLET DAILY;
     Dates: start: 20100903, end: 201110
  12. LENOGRASTIM [Concomitant]
     Indication: PROPHYLAXIS
     Dosage: 100 MICROGRAM DAILY;
     Dates: start: 20110309, end: 20110721

REACTIONS (3)
  - Septic shock [Fatal]
  - Interstitial lung disease [Not Recovered/Not Resolved]
  - Acute myeloid leukaemia [Not Recovered/Not Resolved]
